FAERS Safety Report 5627722-9 (Version None)
Quarter: 2008Q1

REPORT INFORMATION
  Report Type: 
  Country: None (occurrence: None)
  Receive Date: 20080215
  Receipt Date: 20071205
  Transmission Date: 20080703
  Serious: Yes (Other)
  Sender: FDA-Public Use
  Company Number: JP-ASTRAZENECA-2008AP01012

PATIENT
  Age: 52 Year
  Weight: 49 kg

DRUGS (1)
  1. MEROPENEM [Suspect]
     Route: 042

REACTIONS (2)
  - ACUTE RESPIRATORY DISTRESS SYNDROME [None]
  - PNEUMONITIS [None]
